FAERS Safety Report 12867607 (Version 3)
Quarter: 2017Q1

REPORT INFORMATION
  Report Type: Spontaneous
  Country: GB (occurrence: GB)
  Receive Date: 20161020
  Receipt Date: 20170123
  Transmission Date: 20170428
  Serious: Yes (Hospitalization)
  Sender: FDA-Public Use
  Company Number: GB-BIOGEN-2016BI00306441

PATIENT
  Age: 49 Year
  Sex: Female

DRUGS (1)
  1. AVONEX [Suspect]
     Active Substance: INTERFERON BETA-1A
     Indication: MULTIPLE SCLEROSIS
     Route: 030
     Dates: start: 20070514

REACTIONS (4)
  - Dizziness [Unknown]
  - Device breakage [Recovered/Resolved]
  - Back disorder [Unknown]
  - Disorientation [Unknown]

NARRATIVE: CASE EVENT DATE: 201610
